FAERS Safety Report 7920688-8 (Version None)
Quarter: 2011Q4

REPORT INFORMATION
  Report Type: 
  Country: None (occurrence: None)
  Receive Date: 20111117
  Receipt Date: 20111107
  Transmission Date: 20120403
  Serious: Yes (Hospitalization, Other)
  Sender: FDA-Public Use
  Company Number: US-BAYER-2011-082068

PATIENT
  Sex: Female
  Weight: 61.224 kg

DRUGS (9)
  1. MORPHINE [Concomitant]
  2. GABAPENTIN [Concomitant]
  3. LISINOPRIL [Concomitant]
  4. YASMIN [Suspect]
     Indication: PREMENSTRUAL SYNDROME
     Dosage: UNK
     Dates: start: 20070401, end: 20080120
  5. TOPAMAX [Concomitant]
  6. YAZ [Suspect]
     Indication: PREMENSTRUAL SYNDROME
     Dosage: UNK
     Dates: start: 20070401, end: 20080120
  7. NAPROXEN [Concomitant]
  8. PERCOCET [Concomitant]
  9. OXYCONTIN [Concomitant]

REACTIONS (4)
  - THROMBOSIS [None]
  - CONGENITAL CYSTIC KIDNEY DISEASE [None]
  - INJURY [None]
  - PAIN [None]
